FAERS Safety Report 18021429 (Version 2)
Quarter: 2021Q4

REPORT INFORMATION
  Report Type: Spontaneous
  Country: JP (occurrence: JP)
  Receive Date: 20200714
  Receipt Date: 20211029
  Transmission Date: 20220303
  Serious: Yes (Other)
  Sender: FDA-Public Use
  Company Number: JP-BAYER-2020-137423

PATIENT
  Age: 7 Decade
  Sex: Male

DRUGS (2)
  1. NEXAVAR [Suspect]
     Active Substance: SORAFENIB
  2. NEXAVAR [Suspect]
     Active Substance: SORAFENIB

REACTIONS (1)
  - Malignant neoplasm progression [Unknown]
